FAERS Safety Report 8447936-2 (Version None)
Quarter: 2012Q2

REPORT INFORMATION
  Report Type: 
  Country: None (occurrence: None)
  Receive Date: 20120619
  Receipt Date: 20120613
  Transmission Date: 20120825
  Serious: Yes (Other)
  Sender: FDA-Public Use
  Company Number: PHHY2011US03319

PATIENT
  Sex: Female

DRUGS (2)
  1. AFINITOR [Suspect]
     Dosage: 10 MG, DAILY
     Route: 048
     Dates: start: 20110613
  2. AFINITOR [Suspect]
     Indication: RENAL CANCER
     Dosage: 5 MG, QOD
     Route: 048
     Dates: start: 20101124

REACTIONS (9)
  - NEOPLASM PROGRESSION [None]
  - TONGUE BLISTERING [None]
  - FUNGAL INFECTION [None]
  - APHTHOUS STOMATITIS [None]
  - MOUTH ULCERATION [None]
  - NAIL DISORDER [None]
  - HYPERSENSITIVITY [None]
  - BREAST CANCER [None]
  - NEOPLASM MALIGNANT [None]
